FAERS Safety Report 12500068 (Version 1)
Quarter: 2016Q2

REPORT INFORMATION
  Report Type: Spontaneous
  Country: US (occurrence: None)
  Receive Date: 20160624
  Receipt Date: 20160624
  Transmission Date: 20160815
  Serious: Yes (Hospitalization)
  Sender: FDA-Public Use
  Company Number: None

PATIENT
  Age: 63 Year
  Sex: Female

DRUGS (14)
  1. TROSPIUM [Concomitant]
     Active Substance: TROSPIUM
  2. SANCTURA [Concomitant]
     Active Substance: TROSPIUM CHLORIDE
  3. BACLOFEN. [Concomitant]
     Active Substance: BACLOFEN
  4. FOLIC ACID. [Concomitant]
     Active Substance: FOLIC ACID
  5. GILENYA [Suspect]
     Active Substance: FINGOLIMOD HYDROCHLORIDE
     Indication: MULTIPLE SCLEROSIS
     Route: 048
     Dates: start: 20110909
  6. GABAPENTIN. [Concomitant]
     Active Substance: GABAPENTIN
  7. DOCQLACE [Concomitant]
     Active Substance: DOCUSATE SODIUM
  8. CARBAMAZEPINE. [Concomitant]
     Active Substance: CARBAMAZEPINE
  9. CIPROFLOXACIN. [Concomitant]
     Active Substance: CIPROFLOXACIN
  10. OXYBUTYNIN [Concomitant]
     Active Substance: OXYBUTYNIN
  11. FERROUS GLUC [Concomitant]
  12. NACL. [Concomitant]
  13. DEMECLOCYL [Concomitant]
  14. OMEPRAZOLE. [Concomitant]
     Active Substance: OMEPRAZOLE

REACTIONS (1)
  - Hospitalisation [None]

NARRATIVE: CASE EVENT DATE: 201606
